FAERS Safety Report 6225996-7 (Version None)
Quarter: 2009Q2

REPORT INFORMATION
  Report Type: 
  Country: None (occurrence: None)
  Receive Date: 20090612
  Receipt Date: 20081125
  Transmission Date: 20091009
  Serious: Yes (Death)
  Sender: FDA-Public Use
  Company Number: US-PFIZER INC-2008100760

PATIENT
  Sex: Male

DRUGS (1)
  1. SUTENT [Suspect]
     Indication: RENAL CANCER METASTATIC
     Dates: start: 20080401, end: 20080901

REACTIONS (3)
  - DISEASE PROGRESSION [None]
  - LEUKOENCEPHALOPATHY [None]
  - RENAL CANCER METASTATIC [None]
